FAERS Safety Report 9773076 (Version 2)
Quarter: 2014Q1

REPORT INFORMATION
  Report Type: Spontaneous
  Country: CO (occurrence: CO)
  Receive Date: 20131219
  Receipt Date: 20140127
  Transmission Date: 20141002
  Serious: Yes (Hospitalization)
  Sender: FDA-Public Use
  Company Number: CO-PFIZER INC-2013363685

PATIENT
  Age: 86 Year
  Sex: Male

DRUGS (3)
  1. ERANZ [Suspect]
     Indication: SENILE DEMENTIA
     Dosage: 10 MG, 1X/DAY
     Route: 048
     Dates: start: 2012
  2. ZOLOF [Suspect]
     Indication: DEPRESSION
     Dosage: 50 MG, 1X/DAY
     Route: 048
     Dates: start: 2012
  3. NEURONTIN [Suspect]
     Dosage: UNK
     Route: 048

REACTIONS (3)
  - Urinary tract infection bacterial [Unknown]
  - Pyrexia [Unknown]
  - Chills [Unknown]
